FAERS Safety Report 9149573 (Version 1)
Quarter: 2013Q1

REPORT INFORMATION
  Report Type: Spontaneous
  Country: US (occurrence: US)
  Receive Date: 20130308
  Receipt Date: 20130308
  Transmission Date: 20140127
  Serious: No
  Sender: FDA-Public Use
  Company Number: US-ENDO PHARMACEUTICALS INC.-OPCR20120209

PATIENT
  Sex: Female
  Weight: 56.75 kg

DRUGS (14)
  1. OPANA ER 30MG [Suspect]
     Indication: PAIN
     Route: 048
     Dates: start: 201204, end: 20120426
  2. OPANA ER 30MG [Suspect]
     Indication: SYSTEMIC LUPUS ERYTHEMATOSUS
  3. OPANA ER 30MG [Suspect]
     Indication: FIBROMYALGIA
  4. OPANA ER 30MG [Suspect]
     Indication: ARTHRITIS
  5. OPANA ER 30MG [Suspect]
     Indication: SLEEP APNOEA SYNDROME
  6. OPANA ER 30MG [Suspect]
     Indication: FEMOROACETABULAR IMPINGEMENT
  7. OPANA ER 30MG [Suspect]
     Indication: COMPRESSION FRACTURE
  8. OPANA ER [Concomitant]
     Indication: PAIN
     Dosage: UNKNOWN
     Route: 048
     Dates: end: 2012
  9. OPANA ER [Concomitant]
     Indication: SYSTEMIC LUPUS ERYTHEMATOSUS
  10. OPANA ER [Concomitant]
     Indication: FIBROMYALGIA
  11. OPANA ER [Concomitant]
     Indication: ARTHRITIS
  12. OPANA ER [Concomitant]
     Indication: SLEEP APNOEA SYNDROME
  13. OPANA ER [Concomitant]
     Indication: FEMOROACETABULAR IMPINGEMENT
  14. OPANA ER [Concomitant]
     Indication: COMPRESSION FRACTURE

REACTIONS (2)
  - Medication residue present [Recovered/Resolved]
  - Drug ineffective [Recovered/Resolved]
